FAERS Safety Report 7172861-7 (Version None)
Quarter: 2010Q4

REPORT INFORMATION
  Report Type: 
  Country: None (occurrence: None)
  Receive Date: 20101219
  Receipt Date: 20100212
  Transmission Date: 20110411
  Serious: Yes (Hospitalization)
  Sender: FDA-Public Use
  Company Number: US-AMGEN-QUU392662

PATIENT

DRUGS (3)
  1. ENBREL [Suspect]
     Indication: RHEUMATOID ARTHRITIS
     Dosage: 50 MG, QWK
     Route: 058
     Dates: start: 19991101
  2. METHOTREXATE [Concomitant]
     Dosage: 10 MG, QWK
     Dates: start: 19910101
  3. RIZATRIPTAN BENZOATE [Concomitant]

REACTIONS (4)
  - BRONCHITIS [None]
  - MIGRAINE [None]
  - MYOCARDIAL INFARCTION [None]
  - SINUSITIS [None]
